FAERS Safety Report 19635719 (Version 1)
Quarter: 2021Q3

REPORT INFORMATION
  Report Type: Spontaneous
  Country: US (occurrence: US)
  Receive Date: 20210729
  Receipt Date: 20210729
  Transmission Date: 20211014
  Serious: No
  Sender: FDA-Public Use
  Company Number: US-MYLANLABS-2021M1042927

PATIENT
  Sex: Female

DRUGS (1)
  1. MOXIFLOXACIN OPHTHALMIC SOLUTION USP [Suspect]
     Active Substance: MOXIFLOXACIN
     Indication: CATARACT
     Dosage: 0.5 PERCENT
     Route: 047

REACTIONS (2)
  - Product quality issue [Unknown]
  - Product administration error [Unknown]
